FAERS Safety Report 4281408-4 (Version None)
Quarter: 2004Q1

REPORT INFORMATION
  Report Type: 
  Country: None (occurrence: None)
  Receive Date: 20040109
  Receipt Date: 20031007
  Transmission Date: 20041129
  Serious: No
  Sender: FDA-Public Use
  Company Number: US050881

PATIENT
  Age: 59 Year
  Sex: Female

DRUGS (5)
  1. KINERET [Suspect]
     Indication: RHEUMATOID ARTHRITIS
  2. ATORVASTATIN CALCIUM [Concomitant]
  3. METHOTREXATE [Concomitant]
  4. LEFLUNOMIDE [Concomitant]
  5. INSULIN [Concomitant]

REACTIONS (1)
  - POLYMYOSITIS [None]
